FAERS Safety Report 24161058 (Version 1)
Quarter: 2024Q3

REPORT INFORMATION
  Report Type: Spontaneous
  Country: US (occurrence: US)
  Receive Date: 20240801
  Receipt Date: 20240801
  Transmission Date: 20241017
  Serious: No
  Sender: Haleon PLC
  Company Number: US-HALEON-2189945

PATIENT
  Age: 84 Year

DRUGS (1)
  1. ABREVA [Suspect]
     Active Substance: DOCOSANOL
     Indication: Product used for unknown indication
     Dosage: EXP DATE:2026/01
     Dates: start: 20240730, end: 20240730

REACTIONS (3)
  - Lip swelling [Unknown]
  - Lip blister [Unknown]
  - Lip pain [Unknown]

NARRATIVE: CASE EVENT DATE: 20240731
